FAERS Safety Report 6565517-2 (Version None)
Quarter: 2010Q1

REPORT INFORMATION
  Report Type: 
  Country: None (occurrence: None)
  Receive Date: 20100201
  Receipt Date: 20100126
  Transmission Date: 20100710
  Serious: No
  Sender: FDA-Public Use
  Company Number: US-JNJFOC-20100111262

PATIENT
  Sex: Female
  Weight: 87.54 kg

DRUGS (4)
  1. INVEGA SUSTENNA [Suspect]
     Indication: DRUG USE FOR UNKNOWN INDICATION
     Route: 030
  2. INVEGA [Suspect]
     Indication: DRUG USE FOR UNKNOWN INDICATION
     Route: 048
  3. TOPAMAX [Concomitant]
     Indication: ANTIDEPRESSANT THERAPY
     Route: 048
  4. ZOLOFT [Concomitant]
     Indication: ANTIDEPRESSANT THERAPY

REACTIONS (5)
  - AGGRESSION [None]
  - ANGER [None]
  - CATARACT [None]
  - DIARRHOEA [None]
  - DIPLOPIA [None]
